FAERS Safety Report 8808497 (Version 1)
Quarter: 2012Q4

REPORT INFORMATION
  Report Type: Spontaneous
  Country: US (occurrence: None)
  Receive Date: 20120920
  Receipt Date: 20120920
  Transmission Date: 20130627
  Serious: No
  Sender: FDA-Public Use
  Company Number: None

PATIENT
  Age: 59 Year
  Sex: Male
  Weight: 120.7 kg

DRUGS (3)
  1. VANCOMYCIN [Suspect]
     Indication: DIABETIC FOOT ULCER
     Dosage: 1250 mg q8h IV
     Route: 042
     Dates: start: 20120801, end: 20120803
  2. VANCOMYCIN [Suspect]
     Indication: CELLULITIS
     Dosage: 1250 mg q8h IV
     Route: 042
     Dates: start: 20120801, end: 20120803
  3. VANCOMYCIN [Suspect]
     Indication: OSTEOMYELITIS
     Dosage: 1250 mg q8h IV
     Route: 042
     Dates: start: 20120801, end: 20120803

REACTIONS (3)
  - Renal failure acute [None]
  - Renal tubular necrosis [None]
  - Haemodialysis [None]
